FAERS Safety Report 18304083 (Version 1)
Quarter: 2020Q3

REPORT INFORMATION
  Report Type: Spontaneous
  Country: IT (occurrence: IT)
  Receive Date: 20200923
  Receipt Date: 20200923
  Transmission Date: 20201103
  Serious: Yes (Death, Hospitalization)
  Sender: FDA-Public Use
  Company Number: IT-ABBVIE-20K-083-3552273-00

PATIENT
  Sex: Male
  Weight: 70 kg

DRUGS (9)
  1. G CSFPCGEN [Concomitant]
     Indication: NEUTROPENIA
     Route: 065
     Dates: start: 20200822
  2. RAMIPRIL. [Concomitant]
     Active Substance: RAMIPRIL
     Indication: DYSLIPIDAEMIA
  3. IMBRUVICA [Suspect]
     Active Substance: IBRUTINIB
     Indication: CHRONIC LYMPHOCYTIC LEUKAEMIA
     Route: 048
     Dates: start: 20200725, end: 20200822
  4. CIPROFLOXACIN. [Concomitant]
     Active Substance: CIPROFLOXACIN
     Indication: SEPSIS
     Route: 065
     Dates: start: 20200826
  5. CASPOFUNGIN [Concomitant]
     Active Substance: CASPOFUNGIN
     Indication: SEPSIS
     Route: 065
     Dates: start: 20200827
  6. VALSARTAN. [Concomitant]
     Active Substance: VALSARTAN
     Indication: DYSLIPIDAEMIA
  7. ATORVASTATIN [Concomitant]
     Active Substance: ATORVASTATIN
     Indication: HYPERTENSION
  8. ASA [Concomitant]
     Active Substance: ASPIRIN
     Indication: DYSLIPIDAEMIA
  9. CEFTRIAXONE. [Concomitant]
     Active Substance: CEFTRIAXONE
     Indication: SEPSIS
     Route: 065
     Dates: start: 20200822

REACTIONS (2)
  - Septic shock [Fatal]
  - Pancytopenia [Fatal]

NARRATIVE: CASE EVENT DATE: 20200822
